FAERS Safety Report 10183452 (Version 2)
Quarter: 2014Q2

REPORT INFORMATION
  Report Type: Spontaneous
  Country: FR (occurrence: FR)
  Receive Date: 20140520
  Receipt Date: 20140520
  Transmission Date: 20141212
  Serious: Yes (Other)
  Sender: FDA-Public Use
  Company Number: FR-PFIZER INC-2013284612

PATIENT
  Age: 71 Year
  Sex: Male

DRUGS (5)
  1. NEURONTIN [Suspect]
     Indication: PAIN
     Dosage: 1200 MG (3X400MG), DAILY
     Dates: start: 2010
  2. NEURONTIN [Suspect]
     Dosage: 1000 MG, DAILY
  3. NEURONTIN [Suspect]
     Dosage: 800 MG, DAILY
  4. NEURONTIN [Suspect]
     Dosage: 400 MG, DAILY (200MG IN MORNING AND 200MG IN EVENING)
  5. NEURONTIN [Suspect]
     Dosage: 300 MG, 3X/DAY

REACTIONS (10)
  - Convulsion [Recovered/Resolved]
  - Eye haemorrhage [Unknown]
  - Coma [Recovered/Resolved]
  - Wound haemorrhage [Unknown]
  - Dizziness [Unknown]
  - Headache [Unknown]
  - Anxiety [Unknown]
  - Osteoarthritis [Unknown]
  - Drug ineffective [Recovered/Resolved]
  - Vision blurred [Unknown]
